FAERS Safety Report 22091268 (Version 4)
Quarter: 2023Q2

REPORT INFORMATION
  Report Type: Spontaneous
  Country: JP (occurrence: JP)
  Receive Date: 20230314
  Receipt Date: 20230622
  Transmission Date: 20230721
  Serious: Yes (Death)
  Sender: FDA-Public Use
  Company Number: JP-NOVOPROD-1035488

PATIENT
  Age: 15 Year
  Sex: Male
  Weight: 41.2 kg

DRUGS (26)
  1. NORDITROPIN [Suspect]
     Active Substance: SOMATROPIN
     Dosage: 0.65 MG, QD
     Route: 058
  2. NORDITROPIN [Suspect]
     Active Substance: SOMATROPIN
     Dosage: 0.95 MG, QD
     Route: 058
     Dates: end: 20220721
  3. NORDITROPIN [Suspect]
     Active Substance: SOMATROPIN
     Dosage: 0.85 MG, QD
     Route: 058
  4. NORDITROPIN [Suspect]
     Active Substance: SOMATROPIN
     Dosage: 0.80 MG, QD
     Route: 058
     Dates: start: 20210727
  5. NORDITROPIN [Suspect]
     Active Substance: SOMATROPIN
     Indication: Noonan syndrome
     Dosage: 0.85 MG, QD
     Route: 058
     Dates: start: 20190618
  6. NORDITROPIN [Suspect]
     Active Substance: SOMATROPIN
     Dosage: 0.75 MG, QD
     Route: 058
     Dates: start: 20201117
  7. NORDITROPIN [Suspect]
     Active Substance: SOMATROPIN
     Dosage: 0.70 MG, QD
     Route: 058
  8. CANDESARTAN [Suspect]
     Active Substance: CANDESARTAN
     Indication: Arrhythmia
  9. CANDESARTAN [Suspect]
     Active Substance: CANDESARTAN
     Indication: Hypertrophic cardiomyopathy
     Dosage: 2 MG, QD
     Route: 048
     Dates: start: 20220216, end: 20220721
  10. CANDESARTAN [Suspect]
     Active Substance: CANDESARTAN
     Indication: Cardiac failure chronic
  11. FUROSEMIDE [Suspect]
     Active Substance: FUROSEMIDE
     Indication: Hypertrophic cardiomyopathy
     Dosage: 10 MG, QD
     Route: 048
     Dates: start: 20220216, end: 20220721
  12. FUROSEMIDE [Suspect]
     Active Substance: FUROSEMIDE
     Indication: Arrhythmia
  13. FUROSEMIDE [Suspect]
     Active Substance: FUROSEMIDE
     Indication: Cardiac failure chronic
  14. SPIRONOLACTONE [Suspect]
     Active Substance: SPIRONOLACTONE
     Indication: Arrhythmia
  15. SPIRONOLACTONE [Suspect]
     Active Substance: SPIRONOLACTONE
     Indication: Hypertrophic cardiomyopathy
     Dosage: 10 MG, QD
     Route: 048
     Dates: start: 20220216, end: 20220721
  16. SPIRONOLACTONE [Suspect]
     Active Substance: SPIRONOLACTONE
     Indication: Cardiac failure chronic
  17. TAMBOCOR [Suspect]
     Active Substance: FLECAINIDE ACETATE
     Indication: Arrhythmia
  18. TAMBOCOR [Suspect]
     Active Substance: FLECAINIDE ACETATE
     Indication: Cardiac failure chronic
  19. TAMBOCOR [Suspect]
     Active Substance: FLECAINIDE ACETATE
     Indication: Hypertrophic cardiomyopathy
     Dosage: 75 MG, QD
     Route: 048
     Dates: start: 20220216, end: 20220721
  20. INDERAL [Suspect]
     Active Substance: PROPRANOLOL HYDROCHLORIDE
     Indication: Cardiac failure chronic
     Dosage: 1100 MG, QD
     Route: 048
     Dates: end: 20220721
  21. INDERAL [Suspect]
     Active Substance: PROPRANOLOL HYDROCHLORIDE
     Indication: Arrhythmia
     Dosage: 180 MG, QD
     Route: 048
  22. INDERAL [Suspect]
     Active Substance: PROPRANOLOL HYDROCHLORIDE
     Indication: Hypertrophic cardiomyopathy
     Dosage: 1100 MG, QD
     Route: 048
     Dates: start: 20220216
  23. RISPERDAL [Suspect]
     Active Substance: RISPERIDONE
     Indication: Autism spectrum disorder
     Dosage: 1 MG
     Route: 048
     Dates: start: 20220704, end: 20220721
  24. ENALAPRIL MALEATE [Concomitant]
     Active Substance: ENALAPRIL MALEATE
     Dosage: 1.5 MG, QD
  25. CARTIN [LEVOCARNITINE] [Concomitant]
     Dosage: 600 MG, QD
     Route: 048
  26. CORTRIL [Concomitant]
     Active Substance: HYDROCORTISONE
     Dosage: 10 MG, QD
     Route: 048

REACTIONS (2)
  - Hypertrophic cardiomyopathy [Fatal]
  - Arrhythmia [Fatal]

NARRATIVE: CASE EVENT DATE: 20220101
